FAERS Safety Report 4831997-3 (Version None)
Quarter: 2005Q4

REPORT INFORMATION
  Report Type: 
  Country: None (occurrence: None)
  Receive Date: 20051118
  Receipt Date: 20050926
  Transmission Date: 20060501
  Serious: Yes (Hospitalization)
  Sender: FDA-Public Use
  Company Number: GB-ABBOTT-05P-167-0312348-00

PATIENT
  Age: 33 Year
  Sex: Male

DRUGS (7)
  1. HUMIRA [Suspect]
     Indication: SPONDYLITIS
     Route: 058
     Dates: start: 20040802, end: 20041017
  2. CELECOXIB [Concomitant]
     Indication: DRUG USE FOR UNKNOWN INDICATION
     Route: 048
     Dates: start: 20001201
  3. ACETAMINOPHEN [Concomitant]
     Indication: DRUG USE FOR UNKNOWN INDICATION
     Route: 048
  4. DIPROBASE [Concomitant]
     Indication: DRUG USE FOR UNKNOWN INDICATION
     Route: 061
  5. BETAMETHASONE [Concomitant]
     Indication: DRUG USE FOR UNKNOWN INDICATION
     Route: 061
  6. ISPAGHULA [Concomitant]
     Indication: DRUG USE FOR UNKNOWN INDICATION
     Dosage: 50-100 MILLIGRAM
  7. TRAMADOL HCL [Concomitant]
     Indication: DRUG USE FOR UNKNOWN INDICATION
     Dosage: 50-100 MILLIGFAM

REACTIONS (4)
  - ARTHRALGIA [None]
  - HYPERSENSITIVITY [None]
  - MALAISE [None]
  - PHARYNGITIS STREPTOCOCCAL [None]
